FAERS Safety Report 14996336 (Version 2)
Quarter: 2018Q2

REPORT INFORMATION
  Report Type: Spontaneous
  Country: US (occurrence: US)
  Receive Date: 20180611
  Receipt Date: 20180613
  Transmission Date: 20180711
  Serious: Yes (Other)
  Sender: FDA-Public Use
  Company Number: US-PFIZER INC-2018231264

PATIENT
  Age: 53 Year
  Sex: Female
  Weight: 86.18 kg

DRUGS (1)
  1. ESTRING [Suspect]
     Active Substance: ESTRADIOL
     Indication: ATROPHY
     Dosage: UNK
     Route: 067
     Dates: start: 20180601, end: 20180601

REACTIONS (3)
  - Product size issue [Unknown]
  - Product physical issue [Unknown]
  - Vulvovaginal pain [Not Recovered/Not Resolved]

NARRATIVE: CASE EVENT DATE: 20180601
